FAERS Safety Report 23848259 (Version 1)
Quarter: 2024Q2

REPORT INFORMATION
  Report Type: Spontaneous
  Country: FR (occurrence: FR)
  Receive Date: 20240513
  Receipt Date: 20240513
  Transmission Date: 20240716
  Serious: Yes (Other)
  Sender: FDA-Public Use
  Company Number: None

PATIENT

DRUGS (1)
  1. DESMOPRESSIN ACETATE [Suspect]
     Active Substance: DESMOPRESSIN ACETATE
     Indication: Enuresis
     Dosage: 1 DOSAGE FORM, 1 TIME DAILY
     Route: 048
     Dates: start: 20240401, end: 20240422

REACTIONS (1)
  - Trismus [Recovered/Resolved]

NARRATIVE: CASE EVENT DATE: 20240415
